FAERS Safety Report 8514535-3 (Version None)
Quarter: 2012Q3

REPORT INFORMATION
  Report Type: 
  Country: None (occurrence: None)
  Receive Date: 20120717
  Receipt Date: 20120705
  Transmission Date: 20120928
  Serious: Yes (Death, Hospitalization)
  Sender: FDA-Public Use
  Company Number: KP-ELI_LILLY_AND_COMPANY-KR201205001205

PATIENT
  Sex: Male
  Weight: 162 kg

DRUGS (3)
  1. NECITUMUMAB (11F8) (LY3012211) [Suspect]
     Indication: NON-SMALL CELL LUNG CANCER
     Dosage: 800 MG, EVERY 21 DAYS/CYCLE
     Route: 042
     Dates: start: 20111103
  2. GEMCITABINE HYDROCHLORIDE [Suspect]
     Indication: NON-SMALL CELL LUNG CANCER
     Dosage: 2062 MG, EVERY 21 DAYS/CYCLE
     Route: 042
     Dates: start: 20111103
  3. CISPLATIN [Suspect]
     Indication: NON-SMALL CELL LUNG CANCER
     Dosage: 123 MG, EVERY 21 DAYS/CYCLE
     Route: 042
     Dates: start: 20111103

REACTIONS (1)
  - INTERSTITIAL LUNG DISEASE [None]
